FAERS Safety Report 5108343-3 (Version None)
Quarter: 2006Q3

REPORT INFORMATION
  Report Type: 
  Country: None (occurrence: None)
  Receive Date: 20060915
  Receipt Date: 20060905
  Transmission Date: 20061208
  Serious: Yes (Other)
  Sender: FDA-Public Use
  Company Number: 2006097478

PATIENT
  Age: 55 Year
  Sex: Male
  Weight: 99.7913 kg

DRUGS (5)
  1. LYRICA [Suspect]
     Indication: BACK PAIN
     Dosage: 150 MG (75 MG, 2 IN 1 D)
     Dates: start: 20060728, end: 20060731
  2. METHYLPREDNISOLONE [Suspect]
     Indication: URTICARIA
     Dates: start: 20060731
  3. VICODIN [Concomitant]
  4. DURAGESIC-100 [Concomitant]
  5. NIFEDICAL (NIFEDIPINE) [Concomitant]

REACTIONS (3)
  - APHONIA [None]
  - SWELLING FACE [None]
  - URTICARIA [None]
